FAERS Safety Report 12910493 (Version 1)
Quarter: 2016Q4

REPORT INFORMATION
  Report Type: Spontaneous
  Country: US (occurrence: US)
  Receive Date: 20161104
  Receipt Date: 20161104
  Transmission Date: 20170207
  Serious: Yes (Hospitalization)
  Sender: FDA-Public Use
  Company Number: US-JNJFOC-20160923862

PATIENT
  Age: 75 Year
  Sex: Male
  Weight: 83.5 kg

DRUGS (9)
  1. ATORVASTATIN [Concomitant]
     Active Substance: ATORVASTATIN
     Indication: HYPERLIPIDAEMIA
     Route: 065
     Dates: start: 20150402
  2. TRIAMCINOLONE [Concomitant]
     Active Substance: TRIAMCINOLONE
     Indication: FOLLICULITIS
     Route: 065
     Dates: start: 20151229
  3. AMIODARONE [Concomitant]
     Active Substance: AMIODARONE
     Indication: VENTRICULAR TACHYCARDIA
     Route: 065
     Dates: start: 20150326
  4. METOPROLOL SUCCINATE. [Concomitant]
     Active Substance: METOPROLOL SUCCINATE
     Indication: HYPERTENSION
     Route: 065
     Dates: start: 20140718
  5. TAFAMIDIS MEGLUMINE [Concomitant]
     Active Substance: TAFAMIDIS MEGLUMINE
     Indication: CARDIAC AMYLOIDOSIS
     Route: 065
     Dates: start: 20141107
  6. BUMEX [Concomitant]
     Active Substance: BUMETANIDE
     Indication: CARDIAC FAILURE
     Route: 065
     Dates: start: 20160511, end: 20160910
  7. XARELTO [Suspect]
     Active Substance: RIVAROXABAN
     Indication: ATRIAL FIBRILLATION
     Route: 048
     Dates: start: 20160511, end: 20160910
  8. XARELTO [Suspect]
     Active Substance: RIVAROXABAN
     Indication: CEREBROVASCULAR ACCIDENT PROPHYLAXIS
     Route: 048
     Dates: start: 20160511, end: 20160910
  9. MAGNESIUM SULFATE. [Suspect]
     Active Substance: MAGNESIUM SULFATE
     Indication: CONSTIPATION
     Route: 065

REACTIONS (7)
  - Upper gastrointestinal haemorrhage [Recovering/Resolving]
  - Nausea [Unknown]
  - Blood lactic acid increased [Recovering/Resolving]
  - Constipation [Unknown]
  - Chest pain [Unknown]
  - Muscular weakness [Unknown]
  - Back pain [Unknown]

NARRATIVE: CASE EVENT DATE: 201609
